FAERS Safety Report 4532190-4 (Version None)
Quarter: 2004Q4

REPORT INFORMATION
  Report Type: 
  Country: None (occurrence: None)
  Receive Date: 20041217
  Receipt Date: 20041207
  Transmission Date: 20050328
  Serious: Yes (Death)
  Sender: FDA-Public Use
  Company Number: 2004105915

PATIENT
  Age: 56 Year
  Sex: Male

DRUGS (3)
  1. NORVASC [Suspect]
     Indication: HYPERTENSION
     Dosage: 10 MG, ORAL
     Route: 048
     Dates: start: 20011001
  2. LIPITOR [Suspect]
     Indication: HYPERTENSION
     Dosage: 10 MG, ORAL
     Route: 048
     Dates: start: 20010101
  3. ROSUVASTATIN (ROSUVASTATIN) [Concomitant]

REACTIONS (2)
  - BLOOD PRESSURE INCREASED [None]
  - CEREBROVASCULAR ACCIDENT [None]
